FAERS Safety Report 11157213 (Version 2)
Quarter: 2015Q2

REPORT INFORMATION
  Report Type: Spontaneous
  Country: PL (occurrence: PL)
  Receive Date: 20150602
  Receipt Date: 20150630
  Transmission Date: 20150821
  Serious: Yes (Death, Hospitalization)
  Sender: FDA-Public Use
  Company Number: PHHY2015PL062806

PATIENT
  Age: 3 Year

DRUGS (2)
  1. PARACETAMOL SANDOZ [Suspect]
     Active Substance: ACETAMINOPHEN
     Indication: ACCIDENTAL EXPOSURE TO PRODUCT BY CHILD
     Dosage: 50 ML, ONCE/SINGLE
     Route: 048
  2. CHLORPROMAZINE HCL [Concomitant]
     Active Substance: CHLORPROMAZINE HYDROCHLORIDE
     Indication: EMOTIONAL DISORDER
     Route: 065

REACTIONS (18)
  - Toxicity to various agents [Fatal]
  - Loss of consciousness [Unknown]
  - Haemolytic uraemic syndrome [Unknown]
  - Anuria [Unknown]
  - Hyperammonaemia [Unknown]
  - Diarrhoea [Unknown]
  - Bloody discharge [Unknown]
  - Yellow skin [Unknown]
  - Pyrexia [Unknown]
  - Generalised oedema [Unknown]
  - Ocular icterus [Unknown]
  - Accidental exposure to product by child [Unknown]
  - Vomiting [Unknown]
  - Dehydration [Unknown]
  - Renal failure [Unknown]
  - Hepatomegaly [Unknown]
  - Hepatic necrosis [Unknown]
  - Tachypnoea [Unknown]
